FAERS Safety Report 8384200-4 (Version None)
Quarter: 2012Q2

REPORT INFORMATION
  Report Type: 
  Country: None (occurrence: None)
  Receive Date: 20120524
  Receipt Date: 20120323
  Transmission Date: 20120825
  Serious: Yes (Death)
  Sender: FDA-Public Use
  Company Number: JP-ROCHE-GNE323414

PATIENT
  Age: 76 Year
  Sex: Female

DRUGS (4)
  1. UROKINASE [Suspect]
     Indication: PULMONARY EMBOLISM
  2. WARFARIN POTASSIUM [Suspect]
     Indication: PULMONARY EMBOLISM
     Route: 048
  3. HEPARIN [Suspect]
     Indication: PULMONARY EMBOLISM
  4. ALTEPLASE [Suspect]
     Indication: PULMONARY EMBOLISM
     Dosage: 24000000 IU, UNK
     Route: 065

REACTIONS (1)
  - CEREBRAL HAEMORRHAGE [None]
